FAERS Safety Report 23096881 (Version 1)
Quarter: 2023Q4

REPORT INFORMATION
  Report Type: Spontaneous
  Country: GB (occurrence: GB)
  Receive Date: 20231023
  Receipt Date: 20231023
  Transmission Date: 20240110
  Serious: Yes (Other)
  Sender: FDA-Public Use
  Company Number: None

PATIENT
  Age: 79 Year
  Sex: Female
  Weight: 60 kg

DRUGS (6)
  1. SERTRALINE [Suspect]
     Active Substance: SERTRALINE HYDROCHLORIDE
     Indication: Depression
     Dosage: 50 MILLIGRAM, QD (50MG ONCE A DAY AT NIGHT)
     Route: 065
     Dates: start: 20230921, end: 20231005
  2. FELODIPINE [Concomitant]
     Active Substance: FELODIPINE
     Indication: Hypertension
     Dosage: UNK
     Route: 065
  3. LISINOPRIL [Concomitant]
     Active Substance: LISINOPRIL
     Indication: Hypertension
     Dosage: UNK
     Route: 065
  4. OMEPRAZOLE [Concomitant]
     Active Substance: OMEPRAZOLE
     Indication: Prophylaxis
     Dosage: UNK
     Route: 065
  5. ASPIRIN [Concomitant]
     Active Substance: ASPIRIN
     Indication: Anticoagulant therapy
     Dosage: UNK
     Route: 065
  6. SOLIFENACIN [Concomitant]
     Active Substance: SOLIFENACIN
     Dosage: UNK
     Route: 065

REACTIONS (4)
  - Skin exfoliation [Not Recovered/Not Resolved]
  - Glossodynia [Recovered/Resolved with Sequelae]
  - Ear discomfort [Recovered/Resolved]
  - Pruritus [Recovered/Resolved]

NARRATIVE: CASE EVENT DATE: 20230929
